FAERS Safety Report 15178184 (Version 1)
Quarter: 2018Q3

REPORT INFORMATION
  Report Type: Spontaneous
  Country: FR (occurrence: FR)
  Receive Date: 20180721
  Receipt Date: 20180721
  Transmission Date: 20181010
  Serious: Yes (Hospitalization, Other)
  Sender: FDA-Public Use
  Company Number: FR-AUROBINDO-AUR-APL-2018-036420

PATIENT
  Age: 41 Year
  Sex: Male
  Weight: 60 kg

DRUGS (16)
  1. FRAGMINE [Suspect]
     Active Substance: DALTEPARIN SODIUM
     Indication: THROMBOSIS PROPHYLAXIS
     Route: 058
     Dates: start: 20180608, end: 20180608
  2. KETAMINE [Suspect]
     Active Substance: KETAMINE
     Indication: ANALGESIC THERAPY
     Dosage: IN TOTAL
     Route: 042
     Dates: start: 20180607, end: 20180607
  3. PROPOFOL. [Suspect]
     Active Substance: PROPOFOL
     Indication: ANAESTHESIA
     Dosage: IN TOTAL
     Route: 042
     Dates: start: 20180607, end: 20180607
  4. DEXAMETHASONE. [Suspect]
     Active Substance: DEXAMETHASONE
     Indication: ANALGESIC THERAPY
     Dosage: IN TOTAL
     Route: 042
     Dates: start: 20180607, end: 20180607
  5. PARACETAMOL [Suspect]
     Active Substance: ACETAMINOPHEN
     Indication: ANALGESIC THERAPY
     Dosage: IN TOTAL
     Route: 042
     Dates: start: 20180607, end: 20180607
  6. TOPALGIC                           /00599202/ [Suspect]
     Active Substance: TRAMADOL HYDROCHLORIDE
     Indication: ANALGESIC THERAPY
     Route: 042
     Dates: start: 20180607, end: 20180608
  7. SUFENTANIL [Suspect]
     Active Substance: SUFENTANIL
     Indication: ANALGESIC THERAPY
     Dosage: IN TOTAL
     Route: 042
     Dates: start: 20180607, end: 20180607
  8. LOVENOX [Suspect]
     Active Substance: ENOXAPARIN SODIUM
     Indication: THROMBOSIS PROPHYLAXIS
     Route: 058
     Dates: start: 20180607, end: 20180607
  9. ACUPAN [Suspect]
     Active Substance: NEFOPAM HYDROCHLORIDE
     Indication: ANALGESIC THERAPY
     Dosage: IN TOTAL
     Route: 042
     Dates: start: 20180607, end: 20180607
  10. BI?PROFENID [Suspect]
     Active Substance: KETOPROFEN
     Indication: ANALGESIC THERAPY
     Route: 042
     Dates: start: 20180607, end: 20180607
  11. KETOPROFENE                        /00321701/ [Suspect]
     Active Substance: KETOPROFEN
     Indication: ANALGESIC THERAPY
     Route: 042
     Dates: start: 20180607, end: 20180608
  12. PARACETAMOL [Suspect]
     Active Substance: ACETAMINOPHEN
     Dosage: KABI
  13. DROLEPTAN [Suspect]
     Active Substance: DROPERIDOL
     Indication: PROPHYLAXIS OF NAUSEA AND VOMITING
     Dosage: IN TOTAL
     Route: 042
     Dates: start: 20180607, end: 20180607
  14. MIDAZOLAM [Suspect]
     Active Substance: MIDAZOLAM HYDROCHLORIDE
     Indication: ANAESTHESIA
     Dosage: IN TOTAL
     Route: 042
     Dates: start: 20180607, end: 20180607
  15. NEFOPAM                            /00396102/ [Suspect]
     Active Substance: NEFOPAM HYDROCHLORIDE
     Indication: ANALGESIC THERAPY
     Route: 042
     Dates: start: 20180607, end: 20180608
  16. TRACRIUM [Suspect]
     Active Substance: ATRACURIUM BESYLATE
     Indication: ANAESTHESIA
     Dosage: IN TOTAL
     Route: 042
     Dates: start: 20180607, end: 20180607

REACTIONS (1)
  - Haemolytic anaemia [Recovered/Resolved]

NARRATIVE: CASE EVENT DATE: 20180614
